FAERS Safety Report 12500648 (Version 2)
Quarter: 2017Q2

REPORT INFORMATION
  Report Type: Spontaneous
  Country: US (occurrence: US)
  Receive Date: 20160627
  Receipt Date: 20170630
  Transmission Date: 20170830
  Serious: Yes (Other)
  Sender: FDA-Public Use
  Company Number: US-INCYTE CORPORATION-2016IN003652

PATIENT
  Sex: Female

DRUGS (1)
  1. JAKAFI [Suspect]
     Active Substance: RUXOLITINIB
     Dosage: 15 MG, BID
     Route: 048
     Dates: start: 20151110

REACTIONS (9)
  - Rash [Unknown]
  - Blood cholesterol abnormal [Unknown]
  - Rib fracture [Unknown]
  - Joint swelling [Unknown]
  - Scab [Unknown]
  - Blood pressure abnormal [Unknown]
  - Acne [Unknown]
  - Back pain [Unknown]
  - Fall [Unknown]
